FAERS Safety Report 21481054 (Version 1)
Quarter: 2022Q4

REPORT INFORMATION
  Report Type: Spontaneous
  Country: US (occurrence: US)
  Receive Date: 20221019
  Receipt Date: 20221019
  Transmission Date: 20230113
  Serious: No
  Sender: FDA-Public Use
  Company Number: US-HORIZON THERAPEUTICS-HZN-2022-003164

PATIENT

DRUGS (5)
  1. KRYSTEXXA [Suspect]
     Active Substance: PEGLOTICASE
     Indication: Product used for unknown indication
     Dosage: FIRST INFUSION
     Route: 042
  2. KRYSTEXXA [Suspect]
     Active Substance: PEGLOTICASE
     Dosage: SECOND INFUSION
     Route: 042
  3. KRYSTEXXA [Suspect]
     Active Substance: PEGLOTICASE
     Dosage: THIRD INFUSION
     Route: 042
  4. KRYSTEXXA [Suspect]
     Active Substance: PEGLOTICASE
     Dosage: FOURTH INFUSION
     Route: 042
  5. KRYSTEXXA [Suspect]
     Active Substance: PEGLOTICASE
     Dosage: FIFTH INFUSION
     Route: 042

REACTIONS (2)
  - Therapy non-responder [Unknown]
  - Blood uric acid increased [Unknown]
